FAERS Safety Report 22869464 (Version 3)
Quarter: 2023Q4

REPORT INFORMATION
  Report Type: Spontaneous
  Country: PT (occurrence: PT)
  Receive Date: 20230826
  Receipt Date: 20231218
  Transmission Date: 20240110
  Serious: Yes (Other)
  Sender: FDA-Public Use
  Company Number: PT-MYLANLABS-2023M1082304

PATIENT
  Age: 65 Year
  Sex: Female
  Weight: 155 kg

DRUGS (32)
  1. FLUOXETINE [Interacting]
     Active Substance: FLUOXETINE HYDROCHLORIDE
     Indication: Major depression
     Dosage: 20 MILLIGRAM, ONCE A DAY
     Route: 048
     Dates: start: 20230227, end: 20230503
  2. MIRTAZAPINE [Interacting]
     Active Substance: MIRTAZAPINE
     Indication: Major depression
     Dosage: 30 MILLIGRAM, ONCE A DAY
     Route: 048
     Dates: start: 20230125, end: 20230212
  3. MIRTAZAPINE [Interacting]
     Active Substance: MIRTAZAPINE
     Dosage: 45 MILLIGRAM, ONCE A DAY
     Route: 048
     Dates: start: 20230227
  4. MIRTAZAPINE [Interacting]
     Active Substance: MIRTAZAPINE
     Dosage: 45 MILLIGRAM, ONCE A DAY
     Route: 048
     Dates: end: 20230124
  5. QUETIAPINE [Interacting]
     Active Substance: QUETIAPINE
     Indication: Major depression
     Dosage: 300 MILLIGRAM, ONCE A DAY
     Route: 048
     Dates: start: 20230118, end: 20230209
  6. QUETIAPINE [Interacting]
     Active Substance: QUETIAPINE
     Dosage: 50 MILLIGRAM, ONCE A DAY
     Route: 048
     Dates: end: 20230316
  7. OLANZAPINE [Interacting]
     Active Substance: OLANZAPINE
     Indication: Major depression
     Dosage: 10 MILLIGRAM, ONCE A DAY
     Route: 048
     Dates: start: 20230118, end: 20230220
  8. VENLAFAXINE [Interacting]
     Active Substance: VENLAFAXINE HYDROCHLORIDE
     Indication: Major depression
     Dosage: 150 MILLIGRAM, ONCE A DAY
     Route: 048
     Dates: end: 20230131
  9. VENLAFAXINE [Interacting]
     Active Substance: VENLAFAXINE HYDROCHLORIDE
     Dosage: 37.5 MILLIGRAM, ONCE A DAY
     Route: 048
     Dates: start: 20230201, end: 20230209
  10. LITHIUM [Concomitant]
     Active Substance: LITHIUM
     Indication: Major depression
     Dosage: 400 MILLIGRAM, ONCE A DAY
     Route: 048
     Dates: start: 20230213, end: 20230226
  11. CLOMIPRAMINE [Concomitant]
     Active Substance: CLOMIPRAMINE
     Indication: Major depression
     Dosage: 150 MILLIGRAM, ONCE A DAY
     Route: 042
     Dates: start: 20230131, end: 20230131
  12. CLOMIPRAMINE [Concomitant]
     Active Substance: CLOMIPRAMINE
     Dosage: 25 MILLIGRAM, ONCE A DAY
     Route: 048
     Dates: start: 20230210, end: 20230211
  13. CLOMIPRAMINE [Concomitant]
     Active Substance: CLOMIPRAMINE
     Dosage: 25 MILLIGRAM, ONCE A DAY
     Route: 042
     Dates: start: 20230211, end: 20230211
  14. CLOMIPRAMINE [Concomitant]
     Active Substance: CLOMIPRAMINE
     Dosage: 25 MILLIGRAM, ONCE A DAY
     Route: 042
     Dates: start: 20230130, end: 20230130
  15. CLOMIPRAMINE [Concomitant]
     Active Substance: CLOMIPRAMINE
     Dosage: 100 MILLIGRAM, ONCE A DAY
     Route: 042
     Dates: start: 20230202, end: 20230202
  16. CLOMIPRAMINE [Concomitant]
     Active Substance: CLOMIPRAMINE
     Dosage: 125 MILLIGRAM, ONCE A DAY
     Route: 042
     Dates: start: 20230207, end: 20230207
  17. CLOMIPRAMINE [Concomitant]
     Active Substance: CLOMIPRAMINE
     Dosage: 75 MILLIGRAM, ONCE A DAY
     Route: 048
     Dates: start: 20230211, end: 20230211
  18. CLOMIPRAMINE [Concomitant]
     Active Substance: CLOMIPRAMINE
     Dosage: 50 MILLIGRAM, ONCE A DAY
     Route: 042
     Dates: start: 20230210, end: 20230210
  19. CLOMIPRAMINE [Concomitant]
     Active Substance: CLOMIPRAMINE
     Dosage: 25 MILLIGRAM, ONCE A DAY
     Route: 048
     Dates: start: 20230302, end: 20230303
  20. CLOMIPRAMINE [Concomitant]
     Active Substance: CLOMIPRAMINE
     Dosage: 75 MILLIGRAM, ONCE A DAY
     Route: 042
     Dates: start: 20230209, end: 20230209
  21. CLOMIPRAMINE [Concomitant]
     Active Substance: CLOMIPRAMINE
     Dosage: 150 MILLIGRAM, ONCE A DAY
     Route: 042
     Dates: start: 20230204, end: 20230206
  22. CLOMIPRAMINE [Concomitant]
     Active Substance: CLOMIPRAMINE
     Dosage: 125 MILLIGRAM, ONCE A DAY
     Route: 042
     Dates: start: 20230203, end: 20230203
  23. CLOMIPRAMINE [Concomitant]
     Active Substance: CLOMIPRAMINE
     Dosage: 125 MILLIGRAM, ONCE A DAY
     Route: 042
     Dates: start: 20230203, end: 20230203
  24. CLOMIPRAMINE [Concomitant]
     Active Substance: CLOMIPRAMINE
     Dosage: 75 MILLIGRAM, ONCE A DAY
     Route: 048
     Dates: start: 20230209, end: 20230210
  25. CLOMIPRAMINE [Concomitant]
     Active Substance: CLOMIPRAMINE
     Dosage: 50 MILLIGRAM, ONCE A DAY
     Route: 048
     Dates: start: 20230208, end: 20230208
  26. CLOMIPRAMINE [Concomitant]
     Active Substance: CLOMIPRAMINE
     Dosage: 50 MILLIGRAM, ONCE A DAY
     Route: 048
     Dates: start: 20230212, end: 20230301
  27. CLOMIPRAMINE [Concomitant]
     Active Substance: CLOMIPRAMINE
     Dosage: 100 MILLIGRAM, ONCE A DAY
     Route: 042
     Dates: start: 20230208, end: 20230208
  28. CLOMIPRAMINE [Concomitant]
     Active Substance: CLOMIPRAMINE
     Dosage: 25 MILLIGRAM, ONCE A DAY
     Route: 048
     Dates: start: 20230304, end: 20230306
  29. CLOMIPRAMINE [Concomitant]
     Active Substance: CLOMIPRAMINE
     Dosage: 75 MILLIGRAM, ONCE A DAY
     Route: 042
     Dates: start: 20230201, end: 20230201
  30. CLOMIPRAMINE [Concomitant]
     Active Substance: CLOMIPRAMINE
     Dosage: 50 MILLIGRAM, ONCE A DAY
     Route: 042
     Dates: start: 20230302, end: 20230303
  31. CLOMIPRAMINE [Concomitant]
     Active Substance: CLOMIPRAMINE
     Dosage: 25 MILLIGRAM, ONCE A DAY
     Route: 048
     Dates: start: 20230207, end: 20230207
  32. SULPIRIDE [Concomitant]
     Active Substance: SULPIRIDE
     Indication: Major depression
     Dosage: 200 MILLIGRAM, ONCE A DAY
     Route: 048
     Dates: start: 20230222, end: 20230306

REACTIONS (7)
  - Pulmonary embolism [Recovered/Resolved]
  - Major depression [Recovered/Resolved]
  - Multimorbidity [Recovered/Resolved]
  - Adverse event [Recovered/Resolved]
  - Condition aggravated [Recovered/Resolved]
  - Potentiating drug interaction [Recovered/Resolved]
  - Drug ineffective [Recovered/Resolved]

NARRATIVE: CASE EVENT DATE: 20230213
